FAERS Safety Report 8415105-8 (Version None)
Quarter: 2012Q2

REPORT INFORMATION
  Report Type: 
  Country: None (occurrence: None)
  Receive Date: 20120606
  Receipt Date: 20120530
  Transmission Date: 20120825
  Serious: Yes (Hospitalization)
  Sender: FDA-Public Use
  Company Number: US-BAYER-2011-079184

PATIENT
  Age: 24 Year
  Sex: Female
  Weight: 60 kg

DRUGS (4)
  1. NSAID'S [Concomitant]
  2. YAZ [Suspect]
     Indication: CONTRACEPTION
     Dosage: UNK
     Dates: start: 20080601, end: 20101004
  3. YAZ [Suspect]
     Indication: MENORRHAGIA
  4. ANTIBIOTICS [Concomitant]

REACTIONS (6)
  - ANXIETY [None]
  - INJURY [None]
  - PULMONARY EMBOLISM [None]
  - PAIN [None]
  - ANHEDONIA [None]
  - PSYCHOLOGICAL TRAUMA [None]
